FAERS Safety Report 14076705 (Version 1)
Quarter: 2017Q4

REPORT INFORMATION
  Report Type: Spontaneous
  Country: JP (occurrence: JP)
  Receive Date: 20171011
  Receipt Date: 20171011
  Transmission Date: 20180321
  Serious: Yes (Other)
  Sender: FDA-Public Use
  Company Number: JP-HQ SPECIALTY-JP-2017INT000357

PATIENT
  Age: 60 Year
  Sex: Male

DRUGS (2)
  1. RADIOTHERAPY [Suspect]
     Active Substance: RADIATION THERAPY
     Indication: TONGUE NEOPLASM MALIGNANT STAGE UNSPECIFIED
  2. CISPLATIN. [Suspect]
     Active Substance: CISPLATIN
     Indication: TONGUE NEOPLASM MALIGNANT STAGE UNSPECIFIED
     Dosage: 100 MG/M2, PER WEEK FOR 4 WEEKS
     Route: 013

REACTIONS (3)
  - Osteoradionecrosis [Recovered/Resolved]
  - Infection [Recovered/Resolved]
  - Laryngeal stenosis [Recovered/Resolved]
